FAERS Safety Report 17833255 (Version 1)
Quarter: 2020Q2

REPORT INFORMATION
  Report Type: Spontaneous
  Country: GT (occurrence: GT)
  Receive Date: 20200528
  Receipt Date: 20200528
  Transmission Date: 20200714
  Serious: Yes (Other)
  Sender: FDA-Public Use
  Company Number: GT-ASTRAZENECA-2020SE68401

PATIENT
  Age: 62 Year
  Sex: Male

DRUGS (1)
  1. SYMBICORT [Suspect]
     Active Substance: BUDESONIDE\FORMOTEROL FUMARATE DIHYDRATE
     Indication: ASTHMA
     Dosage: SYMBICORT RAPIHALER 160/4.5 MCG ONE INHALATION PER DAY
     Route: 055

REACTIONS (4)
  - Dry mouth [Unknown]
  - Intentional product misuse [Unknown]
  - Dyspnoea [Unknown]
  - Drug dependence [Unknown]
